FAERS Safety Report 8398137-8 (Version None)
Quarter: 2012Q2

REPORT INFORMATION
  Report Type: 
  Country: None (occurrence: None)
  Receive Date: 20120531
  Receipt Date: 20120524
  Transmission Date: 20120825
  Serious: Yes (Other)
  Sender: FDA-Public Use
  Company Number: PHHY2012AU044083

PATIENT
  Sex: Female

DRUGS (1)
  1. NORLEVO [Suspect]
     Indication: CONTRACEPTION
     Route: 048

REACTIONS (3)
  - MATERNAL EXPOSURE BEFORE PREGNANCY [None]
  - ABORTION SPONTANEOUS [None]
  - DRUG INEFFECTIVE [None]
